FAERS Safety Report 18415747 (Version 1)
Quarter: 2020Q4

REPORT INFORMATION
  Report Type: Spontaneous
  Country: US (occurrence: US)
  Receive Date: 20201022
  Receipt Date: 20201022
  Transmission Date: 20210114
  Serious: Yes (Disabling, Other)
  Sender: FDA-Public Use
  Company Number: None

PATIENT
  Age: 81 Year
  Sex: Female
  Weight: 58 kg

DRUGS (1)
  1. PRAVASTATIN. [Suspect]
     Active Substance: PRAVASTATIN
     Indication: HYPERLIPIDAEMIA
     Route: 048

REACTIONS (6)
  - Transaminases increased [None]
  - Blood bilirubin increased [None]
  - Pain in extremity [None]
  - Weight decreased [None]
  - Myopathy [None]
  - Rhabdomyolysis [None]

NARRATIVE: CASE EVENT DATE: 20200731
